FAERS Safety Report 8336520-7 (Version None)
Quarter: 2012Q2

REPORT INFORMATION
  Report Type: 
  Country: None (occurrence: None)
  Receive Date: 20120504
  Receipt Date: 20120427
  Transmission Date: 20120825
  Serious: Yes (Other)
  Sender: FDA-Public Use
  Company Number: US-BRISTOL-MYERS SQUIBB COMPANY-16556839

PATIENT
  Sex: Female

DRUGS (1)
  1. ORENCIA [Suspect]
     Dosage: LAST INF:10APR12 RECEIVED FOR 1 AND HALF YEAR RESTARTED
     Route: 042

REACTIONS (1)
  - SURGERY [None]
